FAERS Safety Report 12914217 (Version 2)
Quarter: 2016Q4

REPORT INFORMATION
  Report Type: Report from Study
  Country: ES (occurrence: ES)
  Receive Date: 20161106
  Receipt Date: 20161115
  Transmission Date: 20170207
  Serious: Yes (Hospitalization, Other)
  Sender: FDA-Public Use
  Company Number: ES-AMGEN-ESPSL2016153638

PATIENT
  Sex: Female
  Weight: 83 kg

DRUGS (1)
  1. PROLIA [Suspect]
     Active Substance: DENOSUMAB
     Indication: OSTEOPOROSIS
     Dosage: UNK
     Route: 065
     Dates: start: 2015

REACTIONS (7)
  - Hyperlipidaemia [Unknown]
  - Anxiety [Unknown]
  - Hospitalisation [Unknown]
  - Myocardial infarction [Unknown]
  - Dementia [Unknown]
  - Diabetes mellitus [Unknown]
  - Depression [Unknown]

NARRATIVE: CASE EVENT DATE: 2015
